FAERS Safety Report 8538667-9 (Version None)
Quarter: 2012Q3

REPORT INFORMATION
  Report Type: 
  Country: None (occurrence: None)
  Receive Date: 20120718
  Receipt Date: 20120718
  Transmission Date: 20120928
  Serious: Yes (Other)
  Sender: FDA-Public Use
  Company Number: None

PATIENT
  Age: 76 Year
  Sex: Male
  Weight: 79.3795 kg

DRUGS (2)
  1. CREON [Suspect]
     Indication: BLOOD CALCIUM
     Dosage: 4 CAPSULES EACH MEAL ORAL
     Route: 048
     Dates: start: 20100901, end: 20110501
  2. CREON [Suspect]
     Indication: GASTROINTESTINAL DISORDER
     Dosage: 4 CAPSULES EACH MEAL ORAL
     Route: 048
     Dates: start: 20100901, end: 20110501

REACTIONS (4)
  - DIARRHOEA [None]
  - DRUG EFFECT DECREASED [None]
  - PRODUCT SUBSTITUTION ISSUE [None]
  - ABDOMINAL DISCOMFORT [None]
